FAERS Safety Report 24348848 (Version 1)
Quarter: 2024Q3

REPORT INFORMATION
  Report Type: Spontaneous
  Country: DE (occurrence: DE)
  Receive Date: 20240923
  Receipt Date: 20240923
  Transmission Date: 20241016
  Serious: Yes (Hospitalization)
  Sender: DR REDDYS
  Company Number: None

PATIENT
  Age: 81 Year
  Sex: Male
  Weight: 52 kg

DRUGS (3)
  1. LENALIDOMIDE [Suspect]
     Active Substance: LENALIDOMIDE
     Indication: Plasma cell myeloma
     Dosage: DAILY DOSE: 15 MG EVERY 7 DAYS
     Route: 048
     Dates: start: 20240709
  2. DEXAMETHASONE [Suspect]
     Active Substance: DEXAMETHASONE
     Indication: Plasma cell myeloma
     Dosage: DAILY DOSE: 20 MG EVERY 7 DAYS
     Route: 048
     Dates: start: 20240709
  3. DARZALEX [Suspect]
     Active Substance: DARATUMUMAB
     Indication: Plasma cell myeloma
     Dosage: DAILY DOSE: 1800 MG EVERY 7 DAYS
     Route: 058
     Dates: start: 20240709

REACTIONS (2)
  - Inflammatory marker increased [Recovered/Resolved]
  - Cytomegalovirus infection [Recovered/Resolved]

NARRATIVE: CASE EVENT DATE: 20240813
